FAERS Safety Report 5570784-8 (Version None)
Quarter: 2007Q4

REPORT INFORMATION
  Report Type: 
  Country: None (occurrence: None)
  Receive Date: 20071221
  Receipt Date: 20071212
  Transmission Date: 20080405
  Serious: Yes (Hospitalization)
  Sender: FDA-Public Use
  Company Number: CA-ELI_LILLY_AND_COMPANY-CA200712003084

PATIENT
  Age: 64 Year
  Sex: Female

DRUGS (5)
  1. FORTEO [Suspect]
     Indication: OSTEOPOROSIS
     Dosage: 20 UG, DAILY (1/D)
     Route: 058
     Dates: start: 20060504, end: 20071101
  2. CALCIUM [Concomitant]
  3. VITAMIN D [Concomitant]
  4. VITALUX [Concomitant]
  5. TYLENOL                                 /SCH/ [Concomitant]

REACTIONS (2)
  - FOOT FRACTURE [None]
  - GAIT DISTURBANCE [None]
